FAERS Safety Report 5695818-1 (Version None)
Quarter: 2008Q2

REPORT INFORMATION
  Report Type: 
  Country: None (occurrence: None)
  Receive Date: 20080407
  Receipt Date: 20080331
  Transmission Date: 20081010
  Serious: Yes (Hospitalization)
  Sender: FDA-Public Use
  Company Number: JP-WYE-H03388508

PATIENT
  Sex: Female

DRUGS (9)
  1. MYLOTARG [Suspect]
     Indication: ACUTE MYELOID LEUKAEMIA
     Route: 041
     Dates: start: 20070607, end: 20070607
  2. FUNGUARD [Concomitant]
     Route: 041
     Dates: start: 20070606, end: 20070622
  3. VANCOMYCIN [Concomitant]
     Route: 041
     Dates: start: 20070607, end: 20070618
  4. BIOFERMIN R [Concomitant]
     Route: 048
     Dates: start: 20070604, end: 20070629
  5. ULCERMIN [Concomitant]
     Route: 048
     Dates: start: 20070604
  6. PAXIL [Concomitant]
     Route: 048
  7. LENDORMIN [Concomitant]
     Route: 048
  8. FIRSTCIN [Concomitant]
     Route: 041
     Dates: start: 20070604, end: 20070612
  9. OMEPRAZOLE [Concomitant]
     Route: 048
     Dates: start: 20070601

REACTIONS (2)
  - BACTERAEMIA [None]
  - C-REACTIVE PROTEIN INCREASED [None]
